FAERS Safety Report 12041981 (Version 4)
Quarter: 2016Q1

REPORT INFORMATION
  Report Type: Spontaneous
  Country: JP (occurrence: JP)
  Receive Date: 20160208
  Receipt Date: 20160323
  Transmission Date: 20160526
  Serious: Yes (Hospitalization, Disabling)
  Sender: FDA-Public Use
  Company Number: JP-ASTRAZENECA-2016SE12120

PATIENT
  Age: 26672 Day
  Sex: Male

DRUGS (15)
  1. VASOLAN [Concomitant]
     Active Substance: VERAPAMIL HYDROCHLORIDE
     Indication: ARRHYTHMIA
     Route: 048
     Dates: start: 20130305
  2. MAINTATE [Concomitant]
     Active Substance: BISOPROLOL FUMARATE
     Indication: ARRHYTHMIA
     Route: 048
     Dates: start: 20130305
  3. HALCION [Concomitant]
     Active Substance: TRIAZOLAM
     Indication: CLUSTER HEADACHE
     Route: 048
     Dates: start: 20080512
  4. METHYCOBAL [Concomitant]
     Active Substance: METHYLCOBALAMIN
     Indication: BACK PAIN
     Route: 048
     Dates: start: 20150728
  5. SPIRIVA [Concomitant]
     Active Substance: TIOTROPIUM BROMIDE MONOHYDRATE
     Indication: CHRONIC OBSTRUCTIVE PULMONARY DISEASE
     Route: 055
     Dates: start: 20150831
  6. EDIROL [Concomitant]
     Active Substance: ELDECALCITOL
     Indication: BACK PAIN
     Route: 048
     Dates: start: 20150901
  7. GENINAX [Suspect]
     Active Substance: GARENOXACIN MESYLATE
     Indication: PNEUMONIA
     Route: 048
     Dates: start: 20160109, end: 20160109
  8. OPALMON [Concomitant]
     Active Substance: LIMAPROST
     Indication: BACK PAIN
     Route: 048
     Dates: start: 20130723
  9. CRAVIT [Concomitant]
     Active Substance: LEVOFLOXACIN
     Indication: PNEUMONIA
     Route: 048
     Dates: start: 20140523, end: 20140524
  10. SYMBICORT [Suspect]
     Active Substance: BUDESONIDE\FORMOTEROL FUMARATE DIHYDRATE
     Indication: CHRONIC OBSTRUCTIVE PULMONARY DISEASE
     Dosage: 1 DF TWICE DAILY
     Route: 055
     Dates: start: 20150831
  11. LOXONIN [Concomitant]
     Active Substance: LOXOPROFEN SODIUM
     Route: 048
     Dates: start: 20160108
  12. ELIQUIS [Concomitant]
     Active Substance: APIXABAN
     Indication: ARRHYTHMIA
     Route: 048
     Dates: start: 20150625, end: 20150804
  13. LYRICA [Concomitant]
     Active Substance: PREGABALIN
     Indication: BACK PAIN
     Route: 048
     Dates: start: 20140513
  14. ANPLAG [Concomitant]
     Active Substance: SARPOGRELATE
     Indication: ARRHYTHMIA
     Route: 048
     Dates: start: 20130305
  15. DEPAS [Concomitant]
     Active Substance: ETIZOLAM
     Indication: CLUSTER HEADACHE
     Route: 048
     Dates: start: 20080512

REACTIONS (3)
  - Nervous system disorder [Unknown]
  - Cerebral artery embolism [Unknown]
  - Shock [Unknown]

NARRATIVE: CASE EVENT DATE: 20160109
